FAERS Safety Report 5206000-6 (Version None)
Quarter: 2006Q4

REPORT INFORMATION
  Report Type: 
  Country: None (occurrence: None)
  Receive Date: 20061027
  Receipt Date: 20060802
  Transmission Date: 20070319
  Serious: No
  Sender: FDA-Public Use
  Company Number: 200616504US

PATIENT
  Age: 36 Year
  Sex: Female

DRUGS (3)
  1. KETEK [Suspect]
     Indication: CYSTITIS
     Dosage: 800 MG
     Dates: start: 20060722, end: 20060730
  2. ACETAMINOPHEN [Concomitant]
  3. HYDROCODONE BITARTRATE (LORTAB) [Concomitant]

REACTIONS (2)
  - URTICARIA [None]
  - URTICARIA GENERALISED [None]
